FAERS Safety Report 9036532 (Version 1)
Quarter: 2013Q1

REPORT INFORMATION
  Report Type: Report from Study
  Country: US (occurrence: US)
  Receive Date: 20130129
  Receipt Date: 20130129
  Transmission Date: 20140127
  Serious: No
  Sender: FDA-Public Use
  Company Number: US-ABBOTT-12P-163-0888927-00

PATIENT
  Age: 50 Year
  Sex: Female

DRUGS (9)
  1. HUMIRA 40 MG/0.8 ML PEN [Suspect]
     Indication: PSORIASIS
     Dates: start: 201112
  2. PLAQUINIL [Concomitant]
     Indication: SYSTEMIC LUPUS ERYTHEMATOSUS
  3. NEURONTIN [Concomitant]
     Indication: FIBROMYALGIA
     Dosage: 300 MQ
  4. NEURONTIN [Concomitant]
     Indication: SYSTEMIC LUPUS ERYTHEMATOSUS
  5. NEURONTIN [Concomitant]
     Indication: PSORIATIC ARTHROPATHY
  6. NAPROXEN [Concomitant]
     Indication: PRODUCT USED FOR UNKNOWN INDICATION
  7. XANAFLEX [Concomitant]
     Indication: PRODUCT USED FOR UNKNOWN INDICATION
  8. ATENOLOL [Concomitant]
     Indication: PRODUCT USED FOR UNKNOWN INDICATION
  9. MEVACOR [Concomitant]
     Indication: BLOOD PRESSURE

REACTIONS (3)
  - Injection site pain [Not Recovered/Not Resolved]
  - Fatigue [Unknown]
  - Somnolence [Unknown]
